FAERS Safety Report 12471685 (Version 1)
Quarter: 2016Q2

REPORT INFORMATION
  Report Type: Spontaneous
  Country: US (occurrence: None)
  Receive Date: 20160615
  Receipt Date: 20160615
  Transmission Date: 20160815
  Serious: No
  Sender: FDA-Public Use
  Company Number: None

PATIENT
  Age: 67 Year
  Sex: Male

DRUGS (14)
  1. AZITHROMYCIN ANHYDROUS. [Concomitant]
     Active Substance: AZITHROMYCIN ANHYDROUS
  2. BACLOFEN. [Concomitant]
     Active Substance: BACLOFEN
  3. GABAPENTINE [Concomitant]
     Active Substance: GABAPENTIN
  4. VITAMIN D [Concomitant]
     Active Substance: CHOLECALCIFEROL
  5. LEVETIRACETRAMIDE [Concomitant]
  6. SOMATULINE DEPOT [Suspect]
     Active Substance: LANREOTIDE ACETATE
     Indication: CHRONIC KIDNEY DISEASE
     Dosage: 60MG Q 4 WEEKS Q4WEEKS SUBCUTANEOUS
     Route: 058
     Dates: start: 20160313
  7. PRAMIPEXOLE. [Concomitant]
     Active Substance: PRAMIPEXOLE
  8. CLOPIDOGREL [Concomitant]
     Active Substance: CLOPIDOGREL BISULFATE
  9. ISISORB MONO TAB [Concomitant]
  10. SIMVASTATIN. [Concomitant]
     Active Substance: SIMVASTATIN
  11. LEVOTHYROXINE. [Concomitant]
     Active Substance: LEVOTHYROXINE
  12. PANTOPRAZOLE [Concomitant]
     Active Substance: PANTOPRAZOLE SODIUM
  13. DICYCLOMINE [Concomitant]
     Active Substance: DICYCLOMINE HYDROCHLORIDE
  14. CABERGOLINE. [Concomitant]
     Active Substance: CABERGOLINE

REACTIONS (1)
  - Headache [None]

NARRATIVE: CASE EVENT DATE: 20160613
